FAERS Safety Report 18937212 (Version 6)
Quarter: 2024Q1

REPORT INFORMATION
  Report Type: Spontaneous
  Country: NL (occurrence: NL)
  Receive Date: 20210225
  Receipt Date: 20240209
  Transmission Date: 20240410
  Serious: Yes (Hospitalization, Other)
  Sender: FDA-Public Use
  Company Number: NL-AMGEN-NLDSP2021021892

PATIENT
  Age: 34 Year
  Sex: Female

DRUGS (10)
  1. CINACALCET [Suspect]
     Active Substance: CINACALCET
     Indication: Hyperparathyroidism primary
     Dosage: 60 MILLIGRAM, ONCE A DAY (60 MG, QD )
     Route: 065
  2. CINACALCET [Suspect]
     Active Substance: CINACALCET
     Indication: Hypercalcaemia
     Dosage: 90 MILLIGRAM, ONCE A DAY (90 MG, QD )
     Route: 065
  3. ASPIRIN [Suspect]
     Active Substance: ASPIRIN
     Indication: Product used for unknown indication
     Dosage: 80 MILLIGRAM, ONCE A DAY(80 MG, QD )
     Route: 065
  4. ASPIRIN [Suspect]
     Active Substance: ASPIRIN
     Indication: Prophylaxis
  5. ASPIRIN [Suspect]
     Active Substance: ASPIRIN
     Indication: Pre-eclampsia
  6. FUROSEMIDE [Suspect]
     Active Substance: FUROSEMIDE
     Indication: Prophylaxis
     Dosage: 40 MILLIGRAM, ONCE A DAY (40 MG, QD )
     Route: 065
  7. FUROSEMIDE [Suspect]
     Active Substance: FUROSEMIDE
     Indication: Hypercalcaemia
  8. NADROPARIN [Suspect]
     Active Substance: NADROPARIN
     Indication: Deep vein thrombosis
     Dosage: UNK
     Route: 065
  9. SALINE [Suspect]
     Active Substance: SODIUM CHLORIDE
     Indication: Product used for unknown indication
     Dosage: 5 LITER, ONCE A DAY,(5 L, QD (INJECTION)
     Route: 065
  10. SALINE [Suspect]
     Active Substance: SODIUM CHLORIDE
     Indication: Hyperemesis gravidarum

REACTIONS (11)
  - Hyperemesis gravidarum [Unknown]
  - Deep vein thrombosis [Unknown]
  - HELLP syndrome [Unknown]
  - Caesarean section [Unknown]
  - Maternal exposure during pregnancy [Unknown]
  - Gestational hypertension [Unknown]
  - Depression [Recovered/Resolved]
  - Post-traumatic stress disorder [Recovered/Resolved]
  - Hypercalcaemia [Recovered/Resolved]
  - No adverse event [Unknown]
  - Normal newborn [Unknown]
